FAERS Safety Report 12730920 (Version 1)
Quarter: 2016Q3

REPORT INFORMATION
  Report Type: Spontaneous
  Country: US (occurrence: US)
  Receive Date: 20160909
  Receipt Date: 20160909
  Transmission Date: 20161109
  Serious: Yes (Hospitalization)
  Sender: FDA-Public Use
  Company Number: None

PATIENT
  Age: 47 Year
  Sex: Male
  Weight: 100.7 kg

DRUGS (5)
  1. MIRALAX [Concomitant]
     Active Substance: POLYETHYLENE GLYCOL 3350
  2. LOVENOX [Concomitant]
     Active Substance: ENOXAPARIN SODIUM
  3. FLOMAX [Concomitant]
     Active Substance: TAMSULOSIN HYDROCHLORIDE
  4. DALTEPARIN 150 IU/KG [Suspect]
     Active Substance: DALTEPARIN
     Indication: PULMONARY EMBOLISM
     Dosage: 150 IU/KG DAILY SUBCUTANEOUS
     Route: 058
     Dates: start: 20160607
  5. PRILOSEC [Concomitant]
     Active Substance: OMEPRAZOLE MAGNESIUM

REACTIONS (3)
  - Small intestinal obstruction [None]
  - Nausea [None]
  - Abdominal distension [None]

NARRATIVE: CASE EVENT DATE: 20160820
